FAERS Safety Report 6095723-5 (Version None)
Quarter: 2009Q1

REPORT INFORMATION
  Report Type: 
  Country: None (occurrence: None)
  Receive Date: 20090227
  Receipt Date: 20080603
  Transmission Date: 20090719
  Serious: Yes (Other)
  Sender: FDA-Public Use
  Company Number: A0730891A

PATIENT
  Age: 33 Year
  Sex: Female

DRUGS (7)
  1. LAMICTAL [Suspect]
     Indication: PARTIAL SEIZURES
     Dosage: 25MG PER DAY
     Route: 048
     Dates: start: 20080509, end: 20080509
  2. XYZAL [Concomitant]
  3. PRILOSEC [Concomitant]
  4. ALLERGY SHOTS [Concomitant]
  5. CYMBALTA [Concomitant]
  6. BENADRYL [Concomitant]
  7. HYDROCORTISONE [Concomitant]

REACTIONS (2)
  - RASH [None]
  - RECTAL HAEMORRHAGE [None]
